FAERS Safety Report 7903578-6 (Version None)
Quarter: 2011Q4

REPORT INFORMATION
  Report Type: 
  Country: None (occurrence: None)
  Receive Date: 20111109
  Receipt Date: 20111109
  Transmission Date: 20120403
  Serious: Yes (Other)
  Sender: FDA-Public Use
  Company Number: None

PATIENT
  Age: 29 Year
  Sex: Female
  Weight: 63.502 kg

DRUGS (1)
  1. MONISTAT [Suspect]
     Indication: VULVOVAGINAL MYCOTIC INFECTION
     Dosage: 1200 MG
     Route: 067
     Dates: start: 20111107, end: 20111108

REACTIONS (4)
  - APPLICATION SITE PRURITUS [None]
  - MIDDLE INSOMNIA [None]
  - APPLICATION SITE PAIN [None]
  - APPLICATION SITE SWELLING [None]
